FAERS Safety Report 12267987 (Version 2)
Quarter: 2016Q2

REPORT INFORMATION
  Report Type: Spontaneous
  Country: US (occurrence: US)
  Receive Date: 20160414
  Receipt Date: 20160419
  Transmission Date: 20160815
  Serious: Yes (Death, Hospitalization, Other)
  Sender: FDA-Public Use
  Company Number: US-009507513-1604USA009619

PATIENT
  Sex: Female
  Weight: 103.86 kg

DRUGS (1)
  1. JANUVIA [Suspect]
     Active Substance: SITAGLIPTIN PHOSPHATE
     Indication: TYPE 2 DIABETES MELLITUS
     Dosage: 100 MG, BID
     Route: 048
     Dates: start: 20061219, end: 20070510

REACTIONS (18)
  - Cerebrovascular accident [Unknown]
  - Inappropriate schedule of drug administration [Unknown]
  - Tonsillectomy [Unknown]
  - Pancreatic carcinoma [Fatal]
  - Cholelithiasis [Unknown]
  - Duodenal ulcer [Unknown]
  - Anaemia [Unknown]
  - Metastases to liver [Unknown]
  - Gingivitis [Recovered/Resolved]
  - Helicobacter gastritis [Unknown]
  - Depressed mood [Unknown]
  - Gastrooesophageal reflux disease [Unknown]
  - Spinal column stenosis [Unknown]
  - Pyelonephritis [Unknown]
  - Hypertension [Unknown]
  - Leukopenia [Unknown]
  - Hysterectomy [Unknown]
  - Catheter site cellulitis [Recovering/Resolving]

NARRATIVE: CASE EVENT DATE: 20061219
